FAERS Safety Report 22069418 (Version 3)
Quarter: 2023Q2

REPORT INFORMATION
  Report Type: Spontaneous
  Country: US (occurrence: US)
  Receive Date: 20230307
  Receipt Date: 20230412
  Transmission Date: 20230721
  Serious: Yes (Death)
  Sender: FDA-Public Use
  Company Number: US-AMNEAL PHARMACEUTICALS-2022-AMRX-04151

PATIENT
  Age: 90 Year
  Sex: Female

DRUGS (1)
  1. RYTARY [Suspect]
     Active Substance: CARBIDOPA\LEVODOPA
     Indication: Product used for unknown indication
     Dosage: 3 CAPSULES(23.75-95MG), 3 /DAY
     Route: 048

REACTIONS (5)
  - Death [Fatal]
  - Parkinson^s disease [Fatal]
  - Fall [Unknown]
  - Hip fracture [Unknown]
  - Renal hypertension [Unknown]

NARRATIVE: CASE EVENT DATE: 20230301
